APPROVED DRUG PRODUCT: MESALAMINE
Active Ingredient: MESALAMINE
Strength: 375MG
Dosage Form/Route: CAPSULE, EXTENDED RELEASE;ORAL
Application: A216967 | Product #001 | TE Code: AB
Applicant: ALEMBIC PHARMACEUTICALS LTD
Approved: Oct 28, 2022 | RLD: No | RS: No | Type: RX